FAERS Safety Report 6734664-4 (Version None)
Quarter: 2010Q2

REPORT INFORMATION
  Report Type: 
  Country: None (occurrence: None)
  Receive Date: 20100520
  Receipt Date: 20100512
  Transmission Date: 20101027
  Serious: Yes (Other)
  Sender: FDA-Public Use
  Company Number: AR-JNJFOC-20100505291

PATIENT
  Sex: Female

DRUGS (2)
  1. IBUPIRAC 4% [Suspect]
     Route: 048
  2. IBUPIRAC 4% [Suspect]
     Indication: PYREXIA
     Dosage: ONLY 2 DOSES, 2 DAYS, TOTAL DAILY DOSE 15 ML
     Route: 048

REACTIONS (1)
  - HYPOTHERMIA [None]
